FAERS Safety Report 8415438-5 (Version None)
Quarter: 2012Q2

REPORT INFORMATION
  Report Type: 
  Country: None (occurrence: None)
  Receive Date: 20120606
  Receipt Date: 20120601
  Transmission Date: 20120825
  Serious: Yes (Death)
  Sender: FDA-Public Use
  Company Number: PHHY2012MX047828

PATIENT
  Sex: Female

DRUGS (1)
  1. ZOLEDRONOC ACID [Suspect]
     Indication: OSTEOPOROSIS
     Dosage: 5 MG/100ML PER YEAR
     Route: 042
     Dates: start: 20110901

REACTIONS (8)
  - CARDIAC ARREST [None]
  - HYPOTENSION [None]
  - BONE NEOPLASM [None]
  - PAIN [None]
  - BLADDER CANCER [None]
  - DYSPHAGIA [None]
  - PELVIC NEOPLASM [None]
  - METASTASES TO NECK [None]
